FAERS Safety Report 6734951-X (Version None)
Quarter: 2010Q2

REPORT INFORMATION
  Report Type: 
  Country: None (occurrence: None)
  Receive Date: 20100521
  Receipt Date: 20100511
  Transmission Date: 20101027
  Serious: Yes (Other)
  Sender: FDA-Public Use
  Company Number: BE-PFIZER INC-2010054046

PATIENT
  Age: 79 Year
  Sex: Female
  Weight: 84 kg

DRUGS (4)
  1. TOVIAZ [Suspect]
     Indication: URINARY INCONTINENCE
     Dosage: 4 MG, 1X/DAY
     Route: 048
     Dates: start: 20100414
  2. DITROPAN [Concomitant]
     Dosage: UNK
  3. NEBIVOLOL [Concomitant]
     Dosage: 5 MG, UNK
     Route: 048
     Dates: start: 20000101
  4. SPIRONOLACTONE [Concomitant]
     Dosage: 50 MG, UNK
     Route: 048

REACTIONS (4)
  - BLOOD PRESSURE INCREASED [None]
  - HEADACHE [None]
  - MALAISE [None]
  - VERTIGO [None]
